FAERS Safety Report 8116010-7 (Version None)
Quarter: 2012Q1

REPORT INFORMATION
  Report Type: 
  Country: None (occurrence: None)
  Receive Date: 20120206
  Receipt Date: 20120130
  Transmission Date: 20120608
  Serious: Yes (Death, Hospitalization)
  Sender: FDA-Public Use
  Company Number: US-ALEXION PHARMACEUTICALS INC.-A201200155

PATIENT
  Sex: Female

DRUGS (30)
  1. SOLIRIS [Suspect]
     Indication: HAEMOLYTIC URAEMIC SYNDROME
     Dosage: 900 MG, QW
     Route: 042
     Dates: start: 20111231, end: 20120120
  2. MYLANTA [Concomitant]
     Dosage: 30 ML, PRN
     Route: 048
  3. LEVALBUTEROL HYDROCHLORIDE [Concomitant]
  4. AMBIEN [Concomitant]
     Dosage: 10 MG, QD HS PRN
     Route: 048
  5. SENNA-S [Concomitant]
     Dosage: UNK, 2 TABS BID
     Route: 048
  6. AMLODIPINE [Concomitant]
     Dosage: 5 MG, QD
     Route: 048
  7. DILTIAZEM HCL [Concomitant]
     Dosage: 240 MG, QD
     Route: 048
  8. BENADRYL [Concomitant]
     Dosage: 25 MG, Q 4 HOURS PRN
     Route: 048
  9. COUMADIN [Concomitant]
     Dosage: 2.5 MG, QD
     Dates: start: 20120122
  10. ACETAMINOPHEN [Concomitant]
     Dosage: 650 MG, QID PRN
     Route: 048
  11. BENZONATATE [Concomitant]
     Dosage: 100 MG, TID PRN
     Route: 048
  12. CYANOCOBALAMIN [Concomitant]
     Dosage: 1000 UG, QD
     Route: 048
  13. FOLIC ACID [Concomitant]
     Dosage: 1 MG, QD
     Route: 048
  14. LORAZEPAM [Concomitant]
     Dosage: 2.5 MG, Q 6 HOURS PRN
     Route: 048
  15. MILK OF MAGNESIA TAB [Concomitant]
     Dosage: 30 ML, Q 12 HOURS PRN
     Route: 048
  16. PROTONIX [Concomitant]
     Dosage: 40 MG, QD
     Route: 048
  17. ASPIRIN [Concomitant]
     Dosage: 325 MG, QD
     Route: 048
  18. LABETALOL HCL [Concomitant]
     Dosage: 100 MG, BID
     Route: 048
  19. LISINOPRIL [Concomitant]
     Dosage: 40 MG, QD
     Route: 048
  20. ONDANSETRON HCL [Concomitant]
     Dosage: 4 MG, Q 4 HOURS PPRN
     Route: 042
  21. ARIXTRA [Concomitant]
     Dosage: 5 MG, QD
     Route: 058
  22. LASIX [Concomitant]
     Dosage: 20 MG, BID
     Route: 042
     Dates: start: 20120116
  23. GUAIFENESIN [Concomitant]
     Dosage: 600 MG, BID
     Route: 048
  24. REGULAR INSULIN [Concomitant]
     Dosage: 6 UNITS WITH MEALS
  25. ATROVENT [Concomitant]
     Dosage: UNK, Q 6 HOURS PRN
  26. ZOLOFT [Concomitant]
     Dosage: 25 MG, QD
     Route: 048
  27. CLONAZEPAM [Concomitant]
     Dosage: 0.25 MG, QD HS
     Route: 048
  28. VICODIN [Concomitant]
     Dosage: 5/500 MG, Q 6 HOURS PRN
     Route: 048
  29. SOLU-MEDROL [Concomitant]
     Dosage: 40 MG, Q 6 HOURS
     Route: 042
     Dates: start: 20120122
  30. POTASSIUM [Concomitant]
     Dosage: 40 MEQ, QD
     Route: 048

REACTIONS (1)
  - MULTI-ORGAN FAILURE [None]
